FAERS Safety Report 8534517-5 (Version None)
Quarter: 2012Q3

REPORT INFORMATION
  Report Type: 
  Country: None (occurrence: None)
  Receive Date: 20120724
  Receipt Date: 20120716
  Transmission Date: 20120928
  Serious: No
  Sender: FDA-Public Use
  Company Number: US-B.I. PHARMACEUTICALS,INC./RIDGEFIELD-2012-BP-15833BP

PATIENT
  Sex: Female

DRUGS (3)
  1. MICARDIS [Suspect]
     Route: 048
  2. MICARDIS [Suspect]
     Indication: HYPERTENSION
     Route: 048
  3. MICARDIS HCT [Suspect]
     Indication: HYPERTENSION
     Route: 048

REACTIONS (1)
  - HYPERTENSION [None]
